FAERS Safety Report 24890523 (Version 1)
Quarter: 2025Q1

REPORT INFORMATION
  Report Type: Spontaneous
  Country: US (occurrence: US)
  Receive Date: 20250127
  Receipt Date: 20250127
  Transmission Date: 20250409
  Serious: No
  Sender: PFIZER
  Company Number: US-PFIZER INC-202500015789

PATIENT
  Age: 61 Year
  Sex: Female
  Weight: 82.55 kg

DRUGS (4)
  1. NIVESTYM [Suspect]
     Active Substance: FILGRASTIM-AAFI
     Indication: Neutropenia
  2. ROSUVASTATIN [Concomitant]
     Active Substance: ROSUVASTATIN
     Indication: Blood cholesterol
  3. FLUOXETINE [Concomitant]
     Active Substance: FLUOXETINE HYDROCHLORIDE
     Indication: Depression
     Dosage: 20 MG, 1X/DAY (ONE DAILY)
  4. LEVOTHYROXINE [Concomitant]
     Active Substance: LEVOTHYROXINE
     Indication: Thyroid disorder
     Dosage: 0.137 MG, 1X/DAY (ONCE DAILY)

REACTIONS (3)
  - Nausea [Unknown]
  - Headache [Unknown]
  - Feeling cold [Unknown]
